FAERS Safety Report 4733284-0 (Version None)
Quarter: 2005Q3

REPORT INFORMATION
  Report Type: 
  Country: None (occurrence: None)
  Receive Date: 20050725
  Receipt Date: 20040927
  Transmission Date: 20060218
  Serious: Yes (Hospitalization)
  Sender: FDA-Public Use
  Company Number: USA-2004-0016979

PATIENT
  Age: 45 Year
  Sex: Female

DRUGS (2)
  1. MS CONTIN [Suspect]
     Dosage: 40 MG, SEE TEXT, ORAL
     Route: 048
  2. XANAX [Suspect]
     Dosage: SEE TEXT

REACTIONS (3)
  - COMA [None]
  - INTENTIONAL MISUSE [None]
  - MULTIPLE DRUG OVERDOSE [None]
